FAERS Safety Report 21028556 (Version 1)
Quarter: 2022Q2

REPORT INFORMATION
  Report Type: Spontaneous
  Country: FR (occurrence: FR)
  Receive Date: 20220630
  Receipt Date: 20220630
  Transmission Date: 20220721
  Serious: Yes (Hospitalization)
  Sender: FDA-Public Use
  Company Number: FR-ALCON LABORATORIES-ALC2022FR002487

PATIENT
  Age: 20 Year
  Sex: Female

DRUGS (1)
  1. ATROPINE [Suspect]
     Active Substance: ATROPINE
     Indication: Keratitis
     Route: 065

REACTIONS (1)
  - Anticholinergic syndrome [Recovered/Resolved]
